FAERS Safety Report 5793088-7 (Version None)
Quarter: 2008Q2

REPORT INFORMATION
  Report Type: 
  Country: None (occurrence: None)
  Receive Date: 20080627
  Receipt Date: 20080623
  Transmission Date: 20081010
  Serious: Yes (Hospitalization, Disabling)
  Sender: FDA-Public Use
  Company Number: ES-BRISTOL-MYERS SQUIBB COMPANY-14238067

PATIENT
  Age: 51 Year
  Sex: Male

DRUGS (5)
  1. VIDEX [Suspect]
     Indication: HIV INFECTION
     Dosage: 100 MG CHEWING TABLETS
     Route: 048
     Dates: start: 19990101
  2. ZIAGEN [Suspect]
     Indication: HIV INFECTION
     Dosage: STRENGTH-300 MG TABLETS
     Route: 048
     Dates: start: 20040101
  3. LIPLAT [Concomitant]
     Dosage: STRENGTH- 10MG
     Route: 048
     Dates: end: 20080206
  4. NEBIVOLOL HCL [Concomitant]
     Dosage: STRENGTH- 5MG
     Route: 048
     Dates: end: 20080206
  5. VIRAMUNE [Concomitant]
     Indication: HIV INFECTION
     Dosage: STRENGTH- 200MG TABLETS
     Route: 048
     Dates: start: 19990101

REACTIONS (1)
  - MYOCARDIAL INFARCTION [None]
